FAERS Safety Report 7265447-7 (Version None)
Quarter: 2011Q1

REPORT INFORMATION
  Report Type: 
  Country: None (occurrence: None)
  Receive Date: 20110131
  Receipt Date: 20110119
  Transmission Date: 20110831
  Serious: Yes (Disabling, Other)
  Sender: FDA-Public Use
  Company Number: PHHY2010CL65998

PATIENT
  Age: 83 Year
  Sex: Male

DRUGS (3)
  1. METFORMIN HCL [Concomitant]
  2. TAREG D [Suspect]
     Dosage: 1 DF, QD
  3. GLIBENCLAMIDE [Concomitant]

REACTIONS (1)
  - TOE AMPUTATION [None]
